FAERS Safety Report 4841348-6 (Version None)
Quarter: 2005Q4

REPORT INFORMATION
  Report Type: 
  Country: None (occurrence: None)
  Receive Date: 20051027
  Receipt Date: 20050422
  Transmission Date: 20060501
  Serious: Yes (Hospitalization, Other)
  Sender: FDA-Public Use
  Company Number: HQWYE258125APR05

PATIENT
  Age: 42 Year
  Sex: Female
  Weight: 88.08 kg

DRUGS (1)
  1. PREMARIN [Suspect]
     Indication: OESTROGEN REPLACEMENT THERAPY
     Dosage: 1.25 MG 1X PER 1 DAY

REACTIONS (1)
  - CEREBROVASCULAR ACCIDENT [None]
